FAERS Safety Report 10399004 (Version 1)
Quarter: 2014Q3

REPORT INFORMATION
  Report Type: Spontaneous
  Country: GB (occurrence: None)
  Receive Date: 20140819
  Receipt Date: 20140819
  Transmission Date: 20150326
  Serious: Yes (Hospitalization)
  Sender: FDA-Public Use
  Company Number: AUR-APL-2014-08244

PATIENT
  Age: 76 Year
  Sex: Female

DRUGS (9)
  1. GLICLAZIDE (GLICLAZIDE) [Concomitant]
     Active Substance: GLICLAZIDE
  2. ASPIRIN (ACETYLSALICYLIC ACID) [Concomitant]
     Active Substance: ASPIRIN
  3. SPIRONOLACTONE (SPIRONOLACTONE) [Concomitant]
     Active Substance: SPIRONOLACTONE
  4. WARFARIN (WARFARIN) [Concomitant]
     Active Substance: WARFARIN
  5. CANDESARTAN CILEXETIL. [Suspect]
     Active Substance: CANDESARTAN CILEXETIL
     Indication: CARDIAC FAILURE CHRONIC
     Dosage: 32 MG, ONCE A DAY, UNKNOWN
     Dates: start: 20110625
  6. FUROSEMIDE (FUROSEMIDE) [Concomitant]
     Active Substance: FUROSEMIDE
  7. BISOPROLOL [Suspect]
     Active Substance: BISOPROLOL
     Indication: CARDIOVASCULAR DISORDER
     Dosage: 5 MG, ONCE A DAY, UNKNOWN
     Dates: start: 20100804
  8. ENALAPRIL [Suspect]
     Active Substance: ENALAPRIL
     Indication: CARDIAC FAILURE CHRONIC
     Route: 048
     Dates: start: 20110304, end: 20110621
  9. AMITRIPTYLINE [Suspect]
     Active Substance: AMITRIPTYLINE
     Indication: MUSCULOSKELETAL PAIN
     Dosage: 20 MG, ONCE A DAY, UNKNOWN
     Dates: start: 20060703, end: 20110828

REACTIONS (8)
  - Dizziness [None]
  - Vomiting [None]
  - Anaemia [None]
  - Fall [None]
  - Orthostatic hypotension [None]
  - Concomitant disease progression [None]
  - Musculoskeletal pain [None]
  - Blood glucose decreased [None]

NARRATIVE: CASE EVENT DATE: 20110828
